FAERS Safety Report 8157493-6 (Version None)
Quarter: 2012Q1

REPORT INFORMATION
  Report Type: 
  Country: None (occurrence: None)
  Receive Date: 20120222
  Receipt Date: 20120207
  Transmission Date: 20120608
  Serious: Yes (Other)
  Sender: FDA-Public Use
  Company Number: CHPA2012US002437

PATIENT
  Age: 68 Year
  Sex: Female

DRUGS (5)
  1. LOSARTAN POTASSIUM [Concomitant]
  2. ASPIRIN [Concomitant]
     Dosage: 81 MG, QD
  3. EXCEDRIN EXTRA STRENGTH TABLETS [Suspect]
     Indication: HEADACHE
     Dosage: .5-1 DF, PRN
     Route: 048
  4. METFORMIN HCL [Concomitant]
  5. THYROXIN [Concomitant]

REACTIONS (5)
  - UNDERDOSE [None]
  - ELECTROCARDIOGRAM ABNORMAL [None]
  - DYSPEPSIA [None]
  - HEART RATE IRREGULAR [None]
  - CHEST PAIN [None]
